FAERS Safety Report 5520978-2 (Version None)
Quarter: 2007Q4

REPORT INFORMATION
  Report Type: 
  Country: None (occurrence: None)
  Receive Date: 20071119
  Receipt Date: 20071107
  Transmission Date: 20080405
  Serious: Yes (Hospitalization)
  Sender: FDA-Public Use
  Company Number: JP-ROCHE-529014

PATIENT
  Age: 46 Year
  Sex: Male
  Weight: 176 kg

DRUGS (3)
  1. ROCEPHIN [Suspect]
     Indication: PLEURISY
     Route: 041
     Dates: start: 20071014, end: 20071014
  2. ROCEPHIN [Suspect]
     Route: 041
     Dates: start: 20071015, end: 20071016
  3. ROCEPHIN [Suspect]
     Route: 041
     Dates: start: 20071017, end: 20071017

REACTIONS (1)
  - LIVER DISORDER [None]
